FAERS Safety Report 20832611 (Version 1)
Quarter: 2022Q2

REPORT INFORMATION
  Report Type: 
  Country: None (occurrence: None)
  Receive Date: 20220516
  Receipt Date: 20220516
  Transmission Date: 20220720
  Serious: No
  Sender: FDA-Public Use
  Company Number: LB-002147023-NVSC2022LB058755

PATIENT

DRUGS (5)
  1. LUCENTIS [Suspect]
     Active Substance: RANIBIZUMAB
     Dosage: UNK (LEFT EYE)?10 MG
     Dates: start: 20211119
  2. LUCENTIS [Suspect]
     Active Substance: RANIBIZUMAB
     Dosage: UNK (LEFT EYE)
     Dates: start: 20220125
  3. LUCENTIS [Suspect]
     Active Substance: RANIBIZUMAB
     Dosage: 1 DOSAGE FORM, QD (LEFT EYE) (LAST DOSE PRIOR TO ONSET OF EVENT)
     Dates: start: 20220305
  4. HUMULIN NOS [Concomitant]
     Active Substance: INSULIN HUMAN
     Dosage: UNK (70/30)
  5. ASPIRIN [Concomitant]
     Active Substance: ASPIRIN

REACTIONS (8)
  - Blindness [None]
  - Cataract [None]
  - Eye haemorrhage [None]
  - Eye infection [None]
  - Eye pain [None]
  - Vision blurred [None]
  - Intentional product misuse [None]
  - Product availability issue [None]

NARRATIVE: CASE EVENT DATE: 20211201
